FAERS Safety Report 8368224-9 (Version None)
Quarter: 2012Q2

REPORT INFORMATION
  Report Type: 
  Country: None (occurrence: None)
  Receive Date: 20120517
  Receipt Date: 20120516
  Transmission Date: 20120825
  Serious: Yes (Other)
  Sender: FDA-Public Use
  Company Number: PE-ABBOTT-12P-127-0914203-00

PATIENT
  Sex: Male

DRUGS (1)
  1. HUMIRA [Suspect]
     Indication: PSORIATIC ARTHROPATHY
     Route: 058
     Dates: start: 20101115, end: 20120228

REACTIONS (3)
  - HEPATIC CIRRHOSIS [None]
  - PYREXIA [None]
  - URINARY TRACT INFECTION [None]
